FAERS Safety Report 7725321-6 (Version None)
Quarter: 2011Q3

REPORT INFORMATION
  Report Type: 
  Country: None (occurrence: None)
  Receive Date: 20110829
  Receipt Date: 20110811
  Transmission Date: 20111222
  Serious: Yes (Hospitalization)
  Sender: FDA-Public Use
  Company Number: 2011MA011703

PATIENT
  Age: 68 Year
  Sex: Female

DRUGS (1)
  1. METFORMIN HYDROCHLORIDE [Suspect]
     Indication: TYPE 2 DIABETES MELLITUS
     Dosage: 2550 MG;QD;

REACTIONS (5)
  - HAEMODIALYSIS [None]
  - RENAL FAILURE ACUTE [None]
  - CONTINUOUS HAEMODIAFILTRATION [None]
  - DEHYDRATION [None]
  - LACTIC ACIDOSIS [None]
